FAERS Safety Report 4599976-1 (Version None)
Quarter: 2005Q1

REPORT INFORMATION
  Report Type: 
  Country: None (occurrence: None)
  Receive Date: 20050303
  Receipt Date: 20050222
  Transmission Date: 20050727
  Serious: Yes (Life-Threatening, Hospitalization, Disabling)
  Sender: FDA-Public Use
  Company Number: HQWYE466622FEB05

PATIENT
  Sex: Female

DRUGS (9)
  1. AMIODARONE HCL [Suspect]
     Indication: ATRIAL FIBRILLATION
     Dosage: 20 MG 1X PER 1 DAY ORAL
     Route: 048
     Dates: start: 20041001, end: 20050117
  2. OMEPRAZOLE [Suspect]
     Dosage: 20 MG 1X PER 1 DAY ORAL
     Route: 048
     Dates: start: 20041001, end: 20050117
  3. NICORANDIL (NICORANDIL) [Concomitant]
  4. CLOPIDOGREL BISULFATE [Concomitant]
  5. METFORMIN HCL [Concomitant]
  6. FUROSEMIDE [Concomitant]
  7. PRAVASTATIN [Concomitant]
  8. ASPIRIN [Concomitant]
  9. REMIPRIL (RAMIPRIL) [Concomitant]

REACTIONS (6)
  - CHOLESTASIS [None]
  - HAEMODIALYSIS [None]
  - LIVER FUNCTION TEST ABNORMAL [None]
  - PRURITUS [None]
  - RENAL FAILURE [None]
  - VOMITING [None]
